FAERS Safety Report 11433143 (Version 2)
Quarter: 2015Q4

REPORT INFORMATION
  Report Type: Report from Study
  Country: ZA (occurrence: ZA)
  Receive Date: 20150829
  Receipt Date: 20151119
  Transmission Date: 20160304
  Serious: Yes (Hospitalization, Other)
  Sender: FDA-Public Use
  Company Number: ZA-AUROBINDO-AUR-APL-2015-07732

PATIENT
  Age: 36 Year
  Sex: Female

DRUGS (1)
  1. NEVIRAPINE. [Suspect]
     Active Substance: NEVIRAPINE
     Indication: ANTIVIRAL TREATMENT

REACTIONS (4)
  - Maternal exposure during pregnancy [Recovered/Resolved]
  - Stevens-Johnson syndrome [Recovered/Resolved]
  - Postpartum sepsis [Recovered/Resolved]
  - Herpes simplex [Recovered/Resolved]
